FAERS Safety Report 14450829 (Version 1)
Quarter: 2018Q1

REPORT INFORMATION
  Report Type: Spontaneous
  Country: RU (occurrence: RU)
  Receive Date: 20180129
  Receipt Date: 20180129
  Transmission Date: 20180509
  Serious: Yes (Life-Threatening, Hospitalization, Other)
  Sender: FDA-Public Use
  Company Number: RU-ACCORD-062906

PATIENT
  Age: 46 Year
  Sex: Male

DRUGS (2)
  1. CAPECITABINE. [Suspect]
     Active Substance: CAPECITABINE
     Indication: ADENOCARCINOMA GASTRIC
     Dosage: FOR THE FIRST 14 DAYS ON AN OUTPATIENT BASIS
     Route: 048
  2. CISPLATIN. [Concomitant]
     Active Substance: CISPLATIN
     Indication: ADENOCARCINOMA GASTRIC
     Dosage: ON DAY 1
     Route: 042

REACTIONS (3)
  - Toxicity to various agents [Recovered/Resolved]
  - Left ventricular dysfunction [Recovered/Resolved]
  - Acute myocardial infarction [Recovered/Resolved]
